FAERS Safety Report 4378181-8 (Version None)
Quarter: 2004Q2

REPORT INFORMATION
  Report Type: 
  Country: None (occurrence: None)
  Receive Date: 20040609
  Receipt Date: 20040525
  Transmission Date: 20050107
  Serious: Yes (Hospitalization)
  Sender: FDA-Public Use
  Company Number: USA040568461

PATIENT
  Age: 41 Year
  Sex: Female
  Weight: 46 kg

DRUGS (5)
  1. SYMBYAX [Suspect]
     Indication: BIPOLAR DISORDER
     Dates: start: 20040325, end: 20040520
  2. ZYPREXA [Suspect]
     Indication: BIPOLAR DISORDER
     Dosage: 2.5 MG /2 DAY
     Dates: start: 20040115, end: 20040325
  3. PROZAC [Suspect]
     Indication: BIPOLAR DISORDER
     Dosage: 40 MG/1 DAY
     Dates: start: 20040115, end: 20040325
  4. XANAX [Concomitant]
  5. DEPAKOTE (VALPORATE SEMISODIUM) [Concomitant]

REACTIONS (7)
  - GASTRITIS [None]
  - HIATUS HERNIA [None]
  - IMPAIRED GASTRIC EMPTYING [None]
  - INTESTINAL DILATATION [None]
  - IRRITABLE BOWEL SYNDROME [None]
  - SINUSITIS [None]
  - SYNCOPE [None]
